FAERS Safety Report 8215144-6 (Version None)
Quarter: 2012Q1

REPORT INFORMATION
  Report Type: 
  Country: None (occurrence: None)
  Receive Date: 20120316
  Receipt Date: 20120306
  Transmission Date: 20120608
  Serious: Yes (Death)
  Sender: FDA-Public Use
  Company Number: FI-ELI_LILLY_AND_COMPANY-FI201203002022

PATIENT
  Sex: Female

DRUGS (6)
  1. PRIMASPAN [Concomitant]
     Indication: ANTICOAGULANT THERAPY
  2. ACETAMINOPHEN [Concomitant]
     Indication: PAIN
  3. CALCIUM +VIT D [Concomitant]
     Indication: MEDICAL DIET
  4. STATIN                             /00084401/ [Concomitant]
     Indication: HYPERCHOLESTEROLAEMIA
  5. DUREKAL [Concomitant]
     Indication: MINERAL SUPPLEMENTATION
  6. FORTEO [Suspect]
     Indication: OSTEOPOROSIS
     Dosage: 20 UG, QD
     Route: 058
     Dates: start: 20110103

REACTIONS (1)
  - DEATH [None]
